FAERS Safety Report 12566844 (Version 3)
Quarter: 2016Q3

REPORT INFORMATION
  Report Type: Report from Study
  Country: CA (occurrence: CA)
  Receive Date: 20160718
  Receipt Date: 20160810
  Transmission Date: 20161109
  Serious: Yes (Other)
  Sender: FDA-Public Use
  Company Number: CA-JNJFOC-20160712810

PATIENT
  Age: 40 Year
  Sex: Male
  Weight: 94.7 kg

DRUGS (1)
  1. REMICADE [Suspect]
     Active Substance: INFLIXIMAB
     Indication: COLITIS ULCERATIVE
     Dosage: 5 MG/KG
     Route: 042
     Dates: start: 20151210

REACTIONS (4)
  - Drug effect decreased [Unknown]
  - Diarrhoea [Recovered/Resolved]
  - Subcutaneous abscess [Recovered/Resolved]
  - Abdominal distension [Recovered/Resolved]

NARRATIVE: CASE EVENT DATE: 201606
